FAERS Safety Report 24749473 (Version 4)
Quarter: 2025Q1

REPORT INFORMATION
  Report Type: Spontaneous
  Country: US (occurrence: US)
  Receive Date: 20241218
  Receipt Date: 20250220
  Transmission Date: 20250409
  Serious: No
  Sender: PFIZER
  Company Number: US-PFIZER INC-202400320854

PATIENT
  Age: 89 Year
  Sex: Male

DRUGS (1)
  1. GENOTROPIN [Suspect]
     Active Substance: SOMATROPIN
     Dosage: 0.4 MG, DAILY, 7 DAYS/WK

REACTIONS (3)
  - Device defective [Unknown]
  - Device information output issue [Unknown]
  - Device power source issue [Unknown]
